FAERS Safety Report 10047032 (Version 1)
Quarter: 2014Q1

REPORT INFORMATION
  Report Type: Spontaneous
  Country: US (occurrence: None)
  Receive Date: 20140328
  Receipt Date: 20140328
  Transmission Date: 20141002
  Serious: Yes (Hospitalization)
  Sender: FDA-Public Use
  Company Number: None

PATIENT
  Age: 88 Year
  Sex: Female
  Weight: 92.08 kg

DRUGS (13)
  1. DECITABINE [Suspect]
     Indication: ACUTE MYELOID LEUKAEMIA
     Dosage: 20MG/M2; QDX5;28DAYCYCLES?10/5/2014-PRESENT
  2. ACYCLOVIR [Concomitant]
  3. AMLODIPINE BESYLATE [Concomitant]
  4. BENOZONATRATE [Concomitant]
  5. CIPROFLOXACIN HCI [Concomitant]
  6. FAMOTODINE [Concomitant]
  7. GUAIFEN DM [Concomitant]
  8. METOPROLOLSUCCINATE ER [Concomitant]
  9. POTASSIUM CHLORIDE [Concomitant]
  10. OYSCO [Concomitant]
  11. PROCHLORPERAZINE MALEATE [Concomitant]
  12. VORICONAZOLE [Concomitant]
  13. ZOLPIDEM TARTRATE [Concomitant]

REACTIONS (2)
  - Device related infection [None]
  - Streptococcal infection [None]
